FAERS Safety Report 9320684 (Version 2)
Quarter: 2013Q3

REPORT INFORMATION
  Report Type: Spontaneous
  Country: US (occurrence: US)
  Receive Date: 20130531
  Receipt Date: 20130904
  Transmission Date: 20140515
  Serious: No
  Sender: FDA-Public Use
  Company Number: US-BIOGENIDEC-2013BI047265

PATIENT
  Age: 62 Year
  Sex: Female

DRUGS (3)
  1. TYSABRI [Suspect]
     Indication: MULTIPLE SCLEROSIS
     Route: 042
     Dates: start: 20120618
  2. AVONEX [Concomitant]
     Indication: MULTIPLE SCLEROSIS
     Route: 030
  3. AVONEX [Concomitant]
     Indication: MULTIPLE SCLEROSIS
     Route: 030
     Dates: start: 19960701

REACTIONS (6)
  - Vein disorder [Unknown]
  - Local swelling [Unknown]
  - Joint swelling [Not Recovered/Not Resolved]
  - Polyuria [Recovered/Resolved with Sequelae]
  - Respiratory tract infection [Recovered/Resolved with Sequelae]
  - Arthralgia [Not Recovered/Not Resolved]
